FAERS Safety Report 24837276 (Version 1)
Quarter: 2025Q1

REPORT INFORMATION
  Report Type: Spontaneous
  Country: US (occurrence: None)
  Receive Date: 20250111
  Receipt Date: 20250111
  Transmission Date: 20250408
  Serious: Yes (Disabling, Other)
  Sender: FDA-CTU
  Company Number: None

PATIENT
  Age: 31 Year
  Sex: Female

DRUGS (1)
  1. SERTRALINE [Suspect]
     Active Substance: SERTRALINE HYDROCHLORIDE
     Indication: Anxiety
     Dates: end: 20220820

REACTIONS (6)
  - Sexual dysfunction [None]
  - Genital hypoaesthesia [None]
  - Disturbance in sexual arousal [None]
  - Therapy cessation [None]
  - Inadequate lubrication [None]
  - Sexual relationship change [None]
